FAERS Safety Report 13915295 (Version 1)
Quarter: 2017Q3

REPORT INFORMATION
  Report Type: Report from Study
  Country: HK (occurrence: HK)
  Receive Date: 20170829
  Receipt Date: 20170829
  Transmission Date: 20171127
  Serious: Yes (Death, Hospitalization)
  Sender: FDA-Public Use
  Company Number: HK-ROCHE-1548116

PATIENT

DRUGS (6)
  1. MYCOPHENOLATE MOFETIL. [Suspect]
     Active Substance: MYCOPHENOLATE MOFETIL
     Dosage: IN FOLLOWING 6 MONTHS
     Route: 065
  2. TACROLIMUS. [Suspect]
     Active Substance: TACROLIMUS
     Indication: LUPUS NEPHRITIS
     Dosage: APPROXIMATELY 0.07 MG/KG/DAY
     Route: 065
  3. AZATHIOPRINE. [Suspect]
     Active Substance: AZATHIOPRINE
     Indication: LUPUS NEPHRITIS
     Route: 065
  4. MYCOPHENOLATE MOFETIL. [Suspect]
     Active Substance: MYCOPHENOLATE MOFETIL
     Indication: LUPUS NEPHRITIS
     Dosage: FOR 6 MONTHS
     Route: 065
  5. MYCOPHENOLATE MOFETIL. [Suspect]
     Active Substance: MYCOPHENOLATE MOFETIL
     Dosage: 1.25-1.5 G/DAY IN THE SECOND YEAR
     Route: 065
  6. PREDNISOLONE. [Suspect]
     Active Substance: PREDNISOLONE
     Indication: LUPUS NEPHRITIS
     Dosage: REDUCED BY 5 MG/DAY EVERY 2 WEEKS TO REACH 5-7.5 MG/DAY AT APPROXIMATELY 6 MONTHS, THEN MAINTAINED F
     Route: 065

REACTIONS (5)
  - Pancreatitis [Unknown]
  - Herpes zoster disseminated [Unknown]
  - Pneumonia [Fatal]
  - Gastroenteritis [Unknown]
  - Urinary tract infection [Unknown]
